FAERS Safety Report 5238204-0 (Version None)
Quarter: 2007Q1

REPORT INFORMATION
  Report Type: 
  Country: None (occurrence: None)
  Receive Date: 20070215
  Receipt Date: 20070209
  Transmission Date: 20070707
  Serious: Yes (Hospitalization)
  Sender: FDA-Public Use
  Company Number: US-PURDUE-USA_2007_0026456

PATIENT
  Age: 44 Year
  Sex: Female

DRUGS (1)
  1. OXYCONTIN [Suspect]
     Indication: BACK PAIN
     Dosage: 60 MG, Q8H
     Route: 048

REACTIONS (5)
  - ABDOMINAL PAIN [None]
  - BLOOD AMYLASE INCREASED [None]
  - GALLBLADDER DISORDER [None]
  - LIPASE INCREASED [None]
  - VOMITING [None]
